FAERS Safety Report 18368321 (Version 1)
Quarter: 2020Q4

REPORT INFORMATION
  Report Type: Spontaneous
  Country: US (occurrence: US)
  Receive Date: 20201009
  Receipt Date: 20201009
  Transmission Date: 20210114
  Serious: Yes (Hospitalization, Other)
  Sender: FDA-Public Use
  Company Number: US-PURDUE-USA-2020-0168966

PATIENT
  Age: 39 Year
  Sex: Male
  Weight: 90 kg

DRUGS (18)
  1. BUPRENORPHINE (SIMILAR TO NDA 21-306) [Suspect]
     Active Substance: BUPRENORPHINE
     Indication: PRODUCT USED FOR UNKNOWN INDICATION
     Dosage: 8 MG, UNK
     Route: 048
  2. OXYCODONE/ ACETAMINOPHEN TABLETS [Suspect]
     Active Substance: ACETAMINOPHEN\OXYCODONE HYDROCHLORIDE
     Indication: PRODUCT USED FOR UNKNOWN INDICATION
     Dosage: 5-325 MG
     Route: 048
  3. PAROXETINE. [Concomitant]
     Active Substance: PAROXETINE
     Indication: PRODUCT USED FOR UNKNOWN INDICATION
     Dosage: 20 MG, UNK
     Route: 065
  4. FOLIC ACID. [Concomitant]
     Active Substance: FOLIC ACID
     Indication: PRODUCT USED FOR UNKNOWN INDICATION
     Dosage: 1 MG, UNK
     Route: 065
     Dates: start: 20181126
  5. OXYCODONE HCL TABLETS (RHODES 91-490) [Suspect]
     Active Substance: OXYCODONE HYDROCHLORIDE
     Indication: PRODUCT USED FOR UNKNOWN INDICATION
     Dosage: UNK
     Route: 048
  6. OXYCODONE/ ACETAMINOPHEN TABLETS [Suspect]
     Active Substance: ACETAMINOPHEN\OXYCODONE HYDROCHLORIDE
     Dosage: 7.5-325 MG
     Route: 048
  7. ROXICODONE [Suspect]
     Active Substance: OXYCODONE HYDROCHLORIDE
     Dosage: 15 MG, Q4H
     Route: 048
     Dates: start: 20150625
  8. THIAMINE HCL [Concomitant]
     Active Substance: THIAMINE HYDROCHLORIDE
     Indication: PRODUCT USED FOR UNKNOWN INDICATION
     Dosage: 100 MG, UNK
     Route: 048
  9. HEROIN [Suspect]
     Active Substance: DIAMORPHINE
     Indication: PRODUCT USED FOR UNKNOWN INDICATION
     Dosage: UNK
     Route: 042
  10. BENZOCAINE. [Concomitant]
     Active Substance: BENZOCAINE
     Indication: PRODUCT USED FOR UNKNOWN INDICATION
     Dosage: 20 %, UNK
     Route: 065
  11. OXYCODONE/ ACETAMINOPHEN TABLETS [Suspect]
     Active Substance: ACETAMINOPHEN\OXYCODONE HYDROCHLORIDE
     Dosage: 10-325 MG
     Route: 048
  12. ROXICODONE [Suspect]
     Active Substance: OXYCODONE HYDROCHLORIDE
     Indication: PAIN
     Dosage: 90 MG, DAILY
     Route: 065
  13. BUPRENORPHINE HCL [Suspect]
     Active Substance: BUPRENORPHINE HYDROCHLORIDE
     Indication: PRODUCT USED FOR UNKNOWN INDICATION
     Dosage: UNK
     Route: 060
  14. ZESTORETIC [Concomitant]
     Active Substance: HYDROCHLOROTHIAZIDE\LISINOPRIL
     Indication: PRODUCT USED FOR UNKNOWN INDICATION
     Dosage: 10-12.5 MG, DAILY
     Route: 048
     Dates: start: 20160202
  15. OXYCODONE HYDROCHLORIDE (SIMILAR TO NDA 22-272) [Suspect]
     Active Substance: OXYCODONE HYDROCHLORIDE
     Indication: BACK PAIN
     Dosage: UNK
     Route: 048
     Dates: start: 201410
  16. HYDROCODONE BITARTRATE AND ACETAMINOPHEN [Suspect]
     Active Substance: ACETAMINOPHEN\HYDROCODONE BITARTRATE
     Indication: PRODUCT USED FOR UNKNOWN INDICATION
     Dosage: 5-325 MG
     Route: 048
  17. AMITRIPTYLINE [Concomitant]
     Active Substance: AMITRIPTYLINE
     Indication: PRODUCT USED FOR UNKNOWN INDICATION
     Dosage: 10 MG, HS
     Route: 048
  18. ESCITALOPRAM [Concomitant]
     Active Substance: ESCITALOPRAM OXALATE
     Indication: PRODUCT USED FOR UNKNOWN INDICATION
     Dosage: 20 MG, DAILY
     Route: 048

REACTIONS (39)
  - Loss of consciousness [Unknown]
  - Rhabdomyolysis [Unknown]
  - Attention deficit hyperactivity disorder [Unknown]
  - Illness [Unknown]
  - Emotional distress [Unknown]
  - Feelings of worthlessness [Unknown]
  - Pain [Unknown]
  - Heart rate increased [Recovered/Resolved]
  - Abscess limb [Unknown]
  - Erectile dysfunction [Unknown]
  - Sepsis [Unknown]
  - Pulmonary embolism [Unknown]
  - Infection [Unknown]
  - Hypertension [Unknown]
  - Overweight [Unknown]
  - Drug withdrawal syndrome [Unknown]
  - Multiple organ dysfunction syndrome [Unknown]
  - Suicidal ideation [Unknown]
  - Bacteraemia [Unknown]
  - Quality of life decreased [Unknown]
  - Pyrexia [Unknown]
  - Product prescribing issue [Unknown]
  - Back pain [Unknown]
  - Sciatica [Unknown]
  - Spondylolisthesis [Unknown]
  - Overdose [Unknown]
  - Drug dependence [Unknown]
  - Drug abuse [Unknown]
  - Cor pulmonale [Unknown]
  - Major depression [Unknown]
  - Acute endocarditis [Unknown]
  - Depressed mood [Unknown]
  - Anxiety [Unknown]
  - Injury [Unknown]
  - Hypokalaemia [Unknown]
  - Peripheral swelling [Unknown]
  - Psychiatric symptom [Unknown]
  - Fatigue [Unknown]
  - Osteoarthritis [Unknown]

NARRATIVE: CASE EVENT DATE: 20140422
